FAERS Safety Report 15185349 (Version 7)
Quarter: 2021Q1

REPORT INFORMATION
  Report Type: Report from Study
  Country: IT (occurrence: IT)
  Receive Date: 20180723
  Receipt Date: 20210118
  Transmission Date: 20210419
  Serious: Yes (Other)
  Sender: FDA-Public Use
  Company Number: IT-SHIRE-IT201815770

PATIENT
  Age: 69 Year
  Sex: Male
  Weight: 54 kg

DRUGS (29)
  1. COAGULATION FACTOR VIII (PORCINE, RECOMBINANT) [Suspect]
     Active Substance: ANTIHEMOPHILIC FACTOR PORCINE, B-DOMAIN TRUNCATED RECOMBINANT
     Indication: HAEMORRHAGE
  2. ENDOXAN [Concomitant]
     Active Substance: CYCLOPHOSPHAMIDE
     Indication: FACTOR VIII INHIBITION
     Dosage: UNK
     Route: 065
  3. DELTACORTENE [Concomitant]
     Active Substance: PREDNISONE
     Indication: IMMUNOSUPPRESSION
     Route: 065
  4. INSULIN LISPRO [Concomitant]
     Active Substance: INSULIN LISPRO
     Dosage: UNK
     Route: 065
  5. FACTOR VII [Concomitant]
     Active Substance: COAGULATION FACTOR VII HUMAN
     Dosage: UNK
     Route: 065
  6. COAGULATION FACTOR VIII (PORCINE, RECOMBINANT) [Suspect]
     Active Substance: ANTIHEMOPHILIC FACTOR PORCINE, B-DOMAIN TRUNCATED RECOMBINANT
     Indication: HAEMORRHAGE
  7. FUROSEMIDE. [Concomitant]
     Active Substance: FUROSEMIDE
     Dosage: UNK
     Route: 065
  8. FUROSEMIDE. [Concomitant]
     Active Substance: FUROSEMIDE
     Dosage: UNK
     Route: 065
  9. FACTOR VII [Concomitant]
     Active Substance: COAGULATION FACTOR VII HUMAN
     Dosage: UNK
     Route: 065
  10. EPTACOG ALFA [Concomitant]
     Active Substance: COAGULATION FACTOR VIIA RECOMBINANT HUMAN
     Dosage: UNK
     Route: 065
  11. PREDNISONE. [Concomitant]
     Active Substance: PREDNISONE
     Dosage: UNK
     Route: 065
  12. FACTOR II (PROTHROMBIN) [Concomitant]
     Active Substance: PROTHROMBIN
     Dosage: UNK
     Route: 065
  13. RITUXIMAB. [Concomitant]
     Active Substance: RITUXIMAB
     Indication: IMMUNOSUPPRESSION
     Dosage: UNK
     Route: 065
  14. PANTOPRAZOLE [Concomitant]
     Active Substance: PANTOPRAZOLE
     Dosage: UNK
     Route: 065
  15. FACTOR II (PROTHROMBIN) [Concomitant]
     Active Substance: PROTHROMBIN
     Dosage: UNK
     Route: 065
  16. FEIBA NF [Concomitant]
     Active Substance: ANTI-INHIBITOR COAGULANT COMPLEX
     Indication: HAEMORRHAGE PROPHYLAXIS
     Dosage: UNK
     Route: 065
  17. RITUXIMAB. [Concomitant]
     Active Substance: RITUXIMAB
     Indication: FACTOR VIII INHIBITION
     Dosage: UNK
     Route: 065
  18. ENDOXAN [Concomitant]
     Active Substance: CYCLOPHOSPHAMIDE
     Dosage: UNK
     Route: 065
  19. DELTACORTENE [Concomitant]
     Active Substance: PREDNISONE
     Route: 065
  20. PANTOPRAZOLE [Concomitant]
     Active Substance: PANTOPRAZOLE
     Dosage: UNK
     Route: 065
  21. PREDNISONE. [Concomitant]
     Active Substance: PREDNISONE
     Dosage: UNK
     Route: 065
  22. FACTOR IX [Concomitant]
     Active Substance: COAGULATION FACTOR IX HUMAN
     Dosage: UNK
     Route: 065
  23. FACTOR IX [Concomitant]
     Active Substance: COAGULATION FACTOR IX HUMAN
     Dosage: UNK
     Route: 065
  24. FACTOR X (STUART PROWER FACTOR) [Concomitant]
     Active Substance: COAGULATION FACTOR X HUMAN
     Dosage: UNK
     Route: 065
  25. COAGULATION FACTOR VIII (PORCINE, RECOMBINANT) [Suspect]
     Active Substance: ANTIHEMOPHILIC FACTOR PORCINE, B-DOMAIN TRUNCATED RECOMBINANT
     Indication: ACQUIRED HAEMOPHILIA
     Dosage: 1000 INTERNATIONAL UNIT/KILOGRAM
     Route: 042
     Dates: start: 20180220, end: 20180220
  26. FACTOR X (STUART PROWER FACTOR) [Concomitant]
     Active Substance: COAGULATION FACTOR X HUMAN
     Dosage: UNK
     Route: 065
  27. COAGULATION FACTOR VIII (PORCINE, RECOMBINANT) [Suspect]
     Active Substance: ANTIHEMOPHILIC FACTOR PORCINE, B-DOMAIN TRUNCATED RECOMBINANT
     Indication: ACQUIRED HAEMOPHILIA
     Dosage: 1000 INTERNATIONAL UNIT/KILOGRAM
     Route: 042
     Dates: start: 20180220, end: 20180220
  28. INSULIN LISPRO [Concomitant]
     Active Substance: INSULIN LISPRO
     Dosage: UNK
     Route: 065
  29. EPTACOG ALFA [Concomitant]
     Active Substance: COAGULATION FACTOR VIIA RECOMBINANT HUMAN
     Dosage: UNK
     Route: 065

REACTIONS (5)
  - Therapy non-responder [Not Recovered/Not Resolved]
  - Haematoma muscle [Recovered/Resolved]
  - Anti factor VIII antibody positive [Not Recovered/Not Resolved]
  - Underdose [Recovered/Resolved]
  - Intestinal obstruction [Recovered/Resolved]

NARRATIVE: CASE EVENT DATE: 20180220
